FAERS Safety Report 23692217 (Version 1)
Quarter: 2024Q1

REPORT INFORMATION
  Report Type: Spontaneous
  Country: US (occurrence: None)
  Receive Date: 20240329
  Receipt Date: 20240329
  Transmission Date: 20240409
  Serious: No
  Sender: FDA-Public Use
  Company Number: None

PATIENT
  Age: 64 Year
  Sex: Male
  Weight: 79.4 kg

DRUGS (12)
  1. TECLISTAMAB [Suspect]
     Active Substance: TECLISTAMAB
     Indication: Plasma cell myeloma
     Dates: start: 20240213, end: 20240306
  2. GLIPIZIDE [Concomitant]
     Active Substance: GLIPIZIDE
  3. SULFAMETHOXAZOLE\TRIMETHOPRIM [Concomitant]
     Active Substance: SULFAMETHOXAZOLE\TRIMETHOPRIM
     Dates: start: 20240214
  4. TRADJENTA [Concomitant]
     Active Substance: LINAGLIPTIN
  5. azalastine [Concomitant]
  6. CYCLOBENZAPRINE [Concomitant]
     Active Substance: CYCLOBENZAPRINE
  7. CETIRIZINE [Concomitant]
     Active Substance: CETIRIZINE HYDROCHLORIDE
  8. LOSARTAN [Concomitant]
     Active Substance: LOSARTAN
  9. OMEPRAZOLE [Concomitant]
     Active Substance: OMEPRAZOLE
  10. PIOGLITAZONE [Concomitant]
     Active Substance: PIOGLITAZONE
  11. ROSUVASTATIN [Concomitant]
     Active Substance: ROSUVASTATIN
  12. VALACYCLOVIR [Concomitant]
     Active Substance: VALACYCLOVIR HYDROCHLORIDE

REACTIONS (14)
  - Pyrexia [None]
  - Lung infiltration [None]
  - Liver injury [None]
  - Blood creatinine increased [None]
  - Haemoglobin decreased [None]
  - White blood cell count decreased [None]
  - Aspartate aminotransferase increased [None]
  - Alanine aminotransferase increased [None]
  - Blood alkaline phosphatase increased [None]
  - Lung opacity [None]
  - Staphylococcus test positive [None]
  - Cytokine release syndrome [None]
  - Haemophagocytic lymphohistiocytosis [None]
  - Serum ferritin increased [None]

NARRATIVE: CASE EVENT DATE: 20240309
